FAERS Safety Report 5859247-X (Version None)
Quarter: 2008Q3

REPORT INFORMATION
  Report Type: 
  Country: None (occurrence: None)
  Receive Date: 20080827
  Receipt Date: 20080502
  Transmission Date: 20090109
  Serious: No
  Sender: FDA-Public Use
  Company Number: US-BAYER-200822452NA

PATIENT
  Sex: Female
  Weight: 59 kg

DRUGS (1)
  1. CLIMARA PRO [Suspect]
     Indication: HORMONE REPLACEMENT THERAPY
     Route: 062

REACTIONS (1)
  - PALPITATIONS [None]
